FAERS Safety Report 8077695-7 (Version None)
Quarter: 2012Q1

REPORT INFORMATION
  Report Type: 
  Country: None (occurrence: None)
  Receive Date: 20120127
  Receipt Date: 20120125
  Transmission Date: 20120608
  Serious: Yes (Other)
  Sender: FDA-Public Use
  Company Number: GB-PFIZER INC-K201001296

PATIENT
  Age: 56 Year
  Sex: Male

DRUGS (1)
  1. ALTACE [Suspect]
     Dosage: 2.5 MG, 1X/DAY
     Route: 048

REACTIONS (3)
  - INSOMNIA [None]
  - HALLUCINATION [None]
  - HALLUCINATION, AUDITORY [None]
